FAERS Safety Report 18045747 (Version 3)
Quarter: 2021Q4

REPORT INFORMATION
  Report Type: Report from Study
  Country: CA (occurrence: CA)
  Receive Date: 20200720
  Receipt Date: 20211110
  Transmission Date: 20220303
  Serious: Yes (Other)
  Sender: FDA-Public Use
  Company Number: CA-JNJFOC-20200615445

PATIENT
  Age: 13 Year
  Sex: Male
  Weight: 47.1 kg

DRUGS (4)
  1. REMICADE [Suspect]
     Active Substance: INFLIXIMAB
     Indication: Colitis ulcerative
     Route: 042
     Dates: start: 20200320
  2. REMICADE [Suspect]
     Active Substance: INFLIXIMAB
     Dosage: ON 10-JUN-2020, THE PATIENT RECEIVED 4TH 550 MG INFLIXIMAB INFUSION AND PARTIAL MAYO WAS COMPLETED.
     Route: 042
     Dates: start: 20200610
  3. REMICADE [Suspect]
     Active Substance: INFLIXIMAB
     Dosage: RE-INDUCTION 0-2 6 Q 4 WEEKS
     Route: 042
  4. REMICADE [Suspect]
     Active Substance: INFLIXIMAB
     Route: 042
     Dates: start: 20211104

REACTIONS (6)
  - Haematochezia [Unknown]
  - General physical health deterioration [Unknown]
  - Frequent bowel movements [Unknown]
  - Weight decreased [Unknown]
  - Off label use [Unknown]
  - Product use issue [Unknown]

NARRATIVE: CASE EVENT DATE: 20200501
